FAERS Safety Report 12621314 (Version 1)
Quarter: 2016Q3

REPORT INFORMATION
  Report Type: Spontaneous
  Country: US (occurrence: US)
  Receive Date: 20160804
  Receipt Date: 20160804
  Transmission Date: 20161109
  Serious: Yes (Other)
  Sender: FDA-Public Use
  Company Number: US-SA-2016SA052082

PATIENT
  Age: 19 Year
  Sex: Female
  Weight: 65.7 kg

DRUGS (1)
  1. ICY HOT MEDICATED SPRAY [Suspect]
     Active Substance: MENTHOL
     Indication: ARTHRALGIA
     Dosage: DOSAGE FORM:SPRAY
     Route: 065
     Dates: start: 20160307, end: 20160307

REACTIONS (2)
  - Application site pain [Not Recovered/Not Resolved]
  - Burns second degree [Not Recovered/Not Resolved]

NARRATIVE: CASE EVENT DATE: 20160308
